FAERS Safety Report 5220846-X (Version None)
Quarter: 2007Q1

REPORT INFORMATION
  Report Type: 
  Country: None (occurrence: None)
  Receive Date: 20070126
  Receipt Date: 20070117
  Transmission Date: 20070707
  Serious: Yes (Other)
  Sender: FDA-Public Use
  Company Number: GB-AVENTIS-200710353EU

PATIENT
  Age: 74 Year
  Sex: Male

DRUGS (2)
  1. FUROSEMIDE [Suspect]
     Indication: HYPERTENSION
     Dosage: DOSE: UNKNOWN DOSAGE
  2. VALSARTAN [Suspect]
     Indication: HYPERTENSION

REACTIONS (7)
  - BLINDNESS [None]
  - CEREBRAL ISCHAEMIA [None]
  - DRUG INTERACTION [None]
  - HALLUCINATION, VISUAL [None]
  - HYPOPERFUSION [None]
  - MOVEMENT DISORDER [None]
  - RETINAL ARTERY OCCLUSION [None]
